FAERS Safety Report 5279427-4 (Version None)
Quarter: 2007Q1

REPORT INFORMATION
  Report Type: 
  Country: None (occurrence: None)
  Receive Date: 20070328
  Receipt Date: 20070315
  Transmission Date: 20070707
  Serious: Yes (Hospitalization, Other)
  Sender: FDA-Public Use
  Company Number: DE-ELI_LILLY_AND_COMPANY-DE200703003344

PATIENT
  Age: 79 Year
  Sex: Male

DRUGS (7)
  1. CYMBALTA [Suspect]
     Indication: DEPRESSION
     Dosage: 60 MG, DAILY (1/D)
     Route: 048
     Dates: start: 20061129, end: 20061218
  2. VENLAFAXINE HCL [Concomitant]
     Dosage: 75 MG, DAILY (1/D)
     Route: 048
     Dates: start: 20020101, end: 20061121
  3. VENLAFAXINE HCL [Concomitant]
     Dosage: 150 MG, DAILY (1/D)
     Route: 048
     Dates: start: 20061122, end: 20061128
  4. MIRTAZAPINE [Concomitant]
     Dosage: 30 MG, DAILY (1/D)
     Route: 048
     Dates: end: 20061126
  5. MIRTAZAPINE [Concomitant]
     Dosage: 15 MG, DAILY (1/D)
     Route: 048
     Dates: start: 20061127, end: 20061128
  6. MELNEURIN [Concomitant]
     Dosage: 25 MG, DAILY (1/D)
     Route: 048
  7. OMNIC [Concomitant]
     Dosage: 0.4 MG, DAILY (1/D)
     Route: 048

REACTIONS (6)
  - ALANINE AMINOTRANSFERASE INCREASED [None]
  - DRUG INTERACTION [None]
  - GAMMA-GLUTAMYLTRANSFERASE INCREASED [None]
  - GLUTAMATE DEHYDROGENASE INCREASED [None]
  - THROMBOCYTOPENIA [None]
  - VIRAL INFECTION [None]
